FAERS Safety Report 5529286-7 (Version None)
Quarter: 2007Q4

REPORT INFORMATION
  Report Type: 
  Country: None (occurrence: None)
  Receive Date: 20071129
  Receipt Date: 20071106
  Transmission Date: 20080405
  Serious: Yes (Hospitalization)
  Sender: FDA-Public Use
  Company Number: US-GENENTECH-250875

PATIENT
  Sex: Female
  Weight: 10.9 kg

DRUGS (7)
  1. SOMATROPIN [Suspect]
     Indication: GROWTH HORMONE DEFICIENCY
     Dosage: 0.545 MG, QD
     Route: 058
     Dates: start: 20050816
  2. BICITRA [Concomitant]
     Indication: DRUG USE FOR UNKNOWN INDICATION
     Dosage: UNK, TID
     Route: 048
  3. CALCIUM CARBONATE [Concomitant]
     Indication: DRUG USE FOR UNKNOWN INDICATION
     Dosage: 25 ML, TID
     Route: 048
  4. EPOGEN [Concomitant]
     Indication: DRUG USE FOR UNKNOWN INDICATION
     Dosage: 2000 UNK, 1/WEEK
     Route: 030
  5. IRON [Concomitant]
     Indication: DRUG USE FOR UNKNOWN INDICATION
     Dosage: 0.25 UNK, UNK
  6. OMNICEF [Concomitant]
     Indication: DRUG USE FOR UNKNOWN INDICATION
     Dosage: 75 MG, QD
     Route: 048
     Dates: start: 20070805
  7. ROCALTROL [Concomitant]
     Indication: DRUG USE FOR UNKNOWN INDICATION
     Dosage: 0.1 UNK, QD
     Route: 048
     Dates: start: 20051129

REACTIONS (3)
  - BLOOD CHLORIDE ABNORMAL [None]
  - BLOOD SODIUM ABNORMAL [None]
  - PYELONEPHRITIS [None]
